FAERS Safety Report 9833457 (Version 2)
Quarter: 2014Q1

REPORT INFORMATION
  Report Type: Spontaneous
  Country: US (occurrence: US)
  Receive Date: 20140122
  Receipt Date: 20140220
  Transmission Date: 20141002
  Serious: Yes (Other)
  Sender: FDA-Public Use
  Company Number: US-AMGEN-USASP2014003303

PATIENT
  Age: 66 Year
  Sex: Male
  Weight: 77.1 kg

DRUGS (4)
  1. ENBREL [Suspect]
     Indication: PSORIASIS
     Dosage: 50 MG, QWK
     Route: 058
     Dates: start: 20080101
  2. LIPITOR [Concomitant]
     Indication: BLOOD CHOLESTEROL INCREASED
     Dosage: UNK
     Route: 048
     Dates: start: 2004
  3. BENICAR [Concomitant]
     Indication: HYPERTENSION
     Dosage: UNK
     Route: 048
  4. ASPIRIN [Concomitant]
     Indication: HYPERTENSION
     Dosage: UNK

REACTIONS (2)
  - Squamous cell carcinoma of head and neck [Recovered/Resolved]
  - Metastases to lymph nodes [Recovered/Resolved]
